FAERS Safety Report 9748786 (Version 1)
Quarter: 2013Q4

REPORT INFORMATION
  Report Type: Spontaneous
  Country: DE (occurrence: None)
  Receive Date: 20131209
  Receipt Date: 20131209
  Transmission Date: 20140711
  Serious: Yes (Life-Threatening, Hospitalization, Other)
  Sender: FDA-Public Use
  Company Number: DSM-2013-01130

PATIENT
  Age: 69 Year
  Sex: Female
  Weight: 94 kg

DRUGS (4)
  1. SEVIKAR HCT (TABLET) [Suspect]
     Indication: ESSENTIAL HYPERTENSION
     Dosage: 40/10/25 MG (1 IN 1 D)
     Route: 048
     Dates: start: 20130329, end: 20130825
  2. BISOPROLOL [Concomitant]
  3. SYMBICORT (FORMOTEROL FUMARATE, BUDESONIDE) [Concomitant]
  4. BETA BLOCKING AGENT (BETA BLOCKING AGENTS) [Concomitant]

REACTIONS (2)
  - Hyponatraemia [None]
  - Gastroenteritis [None]
